FAERS Safety Report 13759447 (Version 1)
Quarter: 2017Q3

REPORT INFORMATION
  Report Type: Spontaneous
  Country: US (occurrence: US)
  Receive Date: 20170717
  Receipt Date: 20170717
  Transmission Date: 20171127
  Serious: No
  Sender: FDA-Public Use
  Company Number: None

PATIENT
  Sex: Male
  Weight: 96.16 kg

DRUGS (2)
  1. DULOXETINE 30MG CAPSULES GENERIC [Suspect]
     Active Substance: DULOXETINE
     Indication: OSTEOARTHRITIS
     Route: 048
  2. DULOXETINE 60MG CAP GENERIC [Suspect]
     Active Substance: DULOXETINE
     Route: 048

REACTIONS (1)
  - Abscess [None]
